FAERS Safety Report 9387416 (Version 2)
Quarter: 2013Q3

REPORT INFORMATION
  Report Type: Report from Study
  Country: DE (occurrence: DE)
  Receive Date: 20130708
  Receipt Date: 20130927
  Transmission Date: 20140515
  Serious: Yes (Hospitalization)
  Sender: FDA-Public Use
  Company Number: DE-SANOFI-AVENTIS-2013SA067230

PATIENT
  Age: 77 Year
  Sex: Male
  Weight: 84 kg

DRUGS (7)
  1. INSULIN GLARGINE [Suspect]
     Indication: TYPE 2 DIABETES MELLITUS
     Route: 058
     Dates: start: 20121022
  2. PHENPROCOUMON [Concomitant]
     Indication: ATRIAL FIBRILLATION
     Dates: start: 200907
  3. BISOPROLOL [Concomitant]
     Indication: ATRIAL FIBRILLATION
     Dates: start: 200906
  4. PRAVASTATIN [Concomitant]
     Dates: start: 1999
  5. TAMSULOSIN [Concomitant]
     Dates: start: 20091204
  6. METFORMIN [Concomitant]
     Indication: TYPE 2 DIABETES MELLITUS
     Dates: start: 200906
  7. DIGITOXIN [Concomitant]
     Dates: start: 20130212

REACTIONS (2)
  - Cardiac vein perforation [Recovered/Resolved]
  - Cardiac tamponade [Recovered/Resolved]
